FAERS Safety Report 5026905-9 (Version None)
Quarter: 2006Q2

REPORT INFORMATION
  Report Type: 
  Country: None (occurrence: None)
  Receive Date: 20060615
  Receipt Date: 20060605
  Transmission Date: 20061013
  Serious: Yes (Other)
  Sender: FDA-Public Use
  Company Number: 2006UW11099

PATIENT
  Age: 71 Year
  Sex: Male
  Weight: 113.4 kg

DRUGS (3)
  1. PULMICORT [Suspect]
     Indication: ASTHMA
     Route: 055
     Dates: start: 20030101
  2. EYE DROPS [Concomitant]
     Indication: GLAUCOMA
  3. EYE DROPS [Concomitant]

REACTIONS (3)
  - DIABETES MELLITUS [None]
  - INTRAOCULAR PRESSURE INCREASED [None]
  - MUSCULAR WEAKNESS [None]
